FAERS Safety Report 16153566 (Version 1)
Quarter: 2019Q2

REPORT INFORMATION
  Report Type: Spontaneous
  Country: US (occurrence: US)
  Receive Date: 20190228
  Receipt Date: 20190228
  Transmission Date: 20190711
  Serious: No
  Sender: FDA-Public Use
  Company Number: None

PATIENT
  Age: 50 Year
  Sex: Female
  Weight: 74.84 kg

DRUGS (1)
  1. HCG [Suspect]
     Active Substance: GONADOTROPHIN, CHORIONIC
     Indication: WEIGHT DECREASED
     Dates: start: 20190121, end: 20190226

REACTIONS (5)
  - Product quality issue [None]
  - Palpitations [None]
  - Needle issue [None]
  - Stress [None]
  - Anxiety [None]

NARRATIVE: CASE EVENT DATE: 20190226
